FAERS Safety Report 6425429-1 (Version None)
Quarter: 2009Q4

REPORT INFORMATION
  Report Type: 
  Country: None (occurrence: None)
  Receive Date: 20091030
  Receipt Date: 20090422
  Transmission Date: 20100525
  Serious: Yes (Life-Threatening)
  Sender: FDA-Public Use
  Company Number: CTI_01008_2009

PATIENT
  Age: 38 Year
  Sex: Female
  Weight: 63.9572 kg

DRUGS (4)
  1. SPECTRACEF [Suspect]
     Indication: BRONCHITIS
     Dosage: (400 MG BID)
     Dates: start: 20090220
  2. SPECTRACEF [Suspect]
     Indication: SINUSITIS
     Dosage: (400 MG BID)
     Dates: start: 20090220
  3. TUSSIONEX [Concomitant]
  4. CICLESONIDE [Concomitant]

REACTIONS (2)
  - COLITIS [None]
  - PRODUCT QUALITY ISSUE [None]
